FAERS Safety Report 4977879-8 (Version None)
Quarter: 2006Q2

REPORT INFORMATION
  Report Type: 
  Country: None (occurrence: None)
  Receive Date: 20060417
  Receipt Date: 20060403
  Transmission Date: 20061013
  Serious: Yes (Other)
  Sender: FDA-Public Use
  Company Number: 2006035744

PATIENT
  Age: 14 Year
  Sex: Male
  Weight: 44.9061 kg

DRUGS (2)
  1. ZOLOFT [Suspect]
     Indication: DEPRESSION
     Dosage: 50 MG (50 MG),
     Dates: start: 20050401, end: 20050801
  2. TORADOL [Suspect]
     Indication: PAIN
     Dates: end: 20050801

REACTIONS (2)
  - RED BLOOD CELL COUNT DECREASED [None]
  - SURGERY [None]
